FAERS Safety Report 7472344-0 (Version None)
Quarter: 2011Q1

REPORT INFORMATION
  Report Type: 
  Country: None (occurrence: None)
  Receive Date: 20110302
  Receipt Date: 20101025
  Transmission Date: 20110831
  Serious: Yes (Other)
  Sender: FDA-Public Use
  Company Number: 163-21880-10092787

PATIENT
  Age: 83 Year
  Sex: Female

DRUGS (3)
  1. REVLIMID [Suspect]
     Indication: MULTIPLE MYELOMA
     Dosage: 25 MG, 1 IN 1 D, PO; 10MG-15MG-25MG, PO; 25 MG, 3X PER WEEK, PO
     Route: 048
     Dates: start: 20061101
  2. REVLIMID [Suspect]
     Indication: MULTIPLE MYELOMA
     Dosage: 25 MG, 1 IN 1 D, PO; 10MG-15MG-25MG, PO; 25 MG, 3X PER WEEK, PO
     Route: 048
     Dates: start: 20100101
  3. REVLIMID [Suspect]
     Indication: MULTIPLE MYELOMA
     Dosage: 25 MG, 1 IN 1 D, PO; 10MG-15MG-25MG, PO; 25 MG, 3X PER WEEK, PO
     Route: 048
     Dates: start: 20090701

REACTIONS (2)
  - NERVE COMPRESSION [None]
  - MULTIPLE MYELOMA [None]
